FAERS Safety Report 10478266 (Version 1)
Quarter: 2014Q3

REPORT INFORMATION
  Report Type: Spontaneous
  Country: US (occurrence: None)
  Receive Date: 20140924
  Receipt Date: 20140924
  Transmission Date: 20150326
  Serious: Yes (Hospitalization)
  Sender: FDA-Public Use
  Company Number: 1713747-2014-999153

PATIENT
  Age: 64 Year
  Sex: Female

DRUGS (18)
  1. GENTAMICIN [Concomitant]
     Active Substance: GENTAMICIN
  2. NPH INSULIN [Concomitant]
     Active Substance: INSULIN BEEF
  3. HYDROCODONE ACETAMINOPHEN [Concomitant]
     Active Substance: ACETAMINOPHEN\HYDROCODONE BITARTRATE
  4. REQUIP [Concomitant]
     Active Substance: ROPINIROLE HYDROCHLORIDE
  5. FUREOSEMIDE [Concomitant]
  6. DOCUSATE DOSIUM [Concomitant]
  7. EPOGEN [Concomitant]
     Active Substance: ERYTHROPOIETIN
  8. LEVOTHRYOXINE [Concomitant]
     Active Substance: LEVOTHYROXINE
  9. CALCITRIOL. [Concomitant]
     Active Substance: CALCITRIOL
  10. DELFLEX [Suspect]
     Active Substance: CALCIUM CHLORIDE\DEXTROSE MONOHYDRATE\MAGNESIUM CHLORIDE\SODIUM CHLORIDE\SODIUM LACTATE
     Indication: PERITONEAL DIALYSIS
     Route: 033
  11. AMLODIPINE [Concomitant]
     Active Substance: AMLODIPINE BESYLATE
  12. GABAPENTIN. [Concomitant]
     Active Substance: GABAPENTIN
  13. LISINOPRIL. [Concomitant]
     Active Substance: LISINOPRIL
  14. VITAMIN D [Concomitant]
     Active Substance: CHOLECALCIFEROL
  15. DELFLEX PD SOLUTION [Concomitant]
  16. METOCLOPRAMIDE. [Concomitant]
     Active Substance: METOCLOPRAMIDE
  17. NEWTON CYCLER CASSETTE [Concomitant]
  18. POTASSIUM CHLO [Concomitant]

REACTIONS (2)
  - Dyspnoea [None]
  - Peritonitis [None]

NARRATIVE: CASE EVENT DATE: 20140808
